FAERS Safety Report 21895176 (Version 1)
Quarter: 2023Q1

REPORT INFORMATION
  Report Type: Report from Study
  Country: US (occurrence: US)
  Receive Date: 20230123
  Receipt Date: 20230123
  Transmission Date: 20230418
  Serious: Yes (Death, Other)
  Sender: FDA-Public Use
  Company Number: US-ACADIA PHARMACEUTICALS INC.-ACA-2022-PIM-004552

PATIENT
  Age: 74 Year
  Sex: Female

DRUGS (13)
  1. NUPLAZID [Suspect]
     Active Substance: PIMAVANSERIN TARTRATE
     Indication: Parkinson^s disease
     Dosage: 34 MILLIGRAM, QD
     Route: 048
     Dates: start: 202209, end: 20221126
  2. NUPLAZID [Suspect]
     Active Substance: PIMAVANSERIN TARTRATE
     Indication: Parkinson^s disease psychosis
  3. ACETAMINOPHEN AND CODEINE [Concomitant]
     Active Substance: ACETAMINOPHEN\CODEINE PHOSPHATE
     Dosage: 300/30 MG, TAKE ONE OR TO TABLETS EVERY 4 T0 6 HOURS AS NEEDED WITH FOOD
     Route: 048
  4. CARBIDOPA\LEVODOPA [Concomitant]
     Active Substance: CARBIDOPA\LEVODOPA
     Dosage: 25/100 MG, TAKE ONE TABLET THREE TIMES A DAY
     Route: 048
  5. CICLOPIROX [Concomitant]
     Active Substance: CICLOPIROX
     Dosage: 8%, APPLY SMALL AMOUNT TOPICALLY ONE TIMES DAILY AND CLEAN OFF WEEKLY WITH ALCOHOL
     Route: 061
  6. DOCUSATE SODIUM [Concomitant]
     Active Substance: DOCUSATE SODIUM
     Dosage: 100 MG, TAKE ONE CAPSULE TWICE A DAY AS NEEDED
     Route: 048
  7. ESCITALOPRAM [Concomitant]
     Active Substance: ESCITALOPRAM OXALATE
     Dosage: 10 MILLIGRAM, TAKE ONE TABLET AT NIGHT
     Route: 048
  8. FAMOTIDINE [Concomitant]
     Active Substance: FAMOTIDINE
     Dosage: 40 MILLIGRAM, TAKE ONE TABLET ONE TIME DAILY AT BEDTIME AS NEEDED
     Route: 048
  9. FORTEO [Concomitant]
     Active Substance: TERIPARATIDE
     Dosage: 20 MCG
     Route: 058
  10. ACETAMINOPHEN\HYDROCODONE [Concomitant]
     Active Substance: ACETAMINOPHEN\HYDROCODONE
     Dosage: 5/325 MG, ONE TABLET BY MOUTH EVERY 6 HOURS
     Route: 048
  11. ALBUTEROL\IPRATROPIUM [Concomitant]
     Active Substance: ALBUTEROL\IPRATROPIUM
     Dosage: 0.5MG/3 MG, INHALE ONE VIAL VIA NEBULIZER EVERY 6 HOURS AS NEEDED
  12. FISH OIL [Concomitant]
     Active Substance: FISH OIL
  13. QUETIAPINE [Concomitant]
     Active Substance: QUETIAPINE
     Dosage: ONE TABLET AT BEDTIME
     Route: 048

REACTIONS (1)
  - Death [Recovered/Resolved]

NARRATIVE: CASE EVENT DATE: 20221126
